FAERS Safety Report 10711283 (Version 2)
Quarter: 2015Q1

REPORT INFORMATION
  Report Type: Spontaneous
  Country: US (occurrence: US)
  Receive Date: 20150114
  Receipt Date: 20150122
  Transmission Date: 20150721
  Serious: Yes (Hospitalization)
  Sender: FDA-Public Use
  Company Number: US-PFIZER INC-2015013251

PATIENT
  Age: 54 Year
  Sex: Female

DRUGS (27)
  1. ALTEPLASE [Concomitant]
     Active Substance: ALTEPLASE
     Dosage: 2 MG, AS NEEDED (2 MG LNJECTION Q 30 MINUTES FOR 2 DOSES PRN IN STER WATER 2 ML)
  2. CYANOCOBALAMIN. [Concomitant]
     Active Substance: CYANOCOBALAMIN
     Dosage: 1000 UG/ML, UNK (1 ML INTRAMUSCULAR ONCE)
     Route: 030
  3. LEVOTHROID [Concomitant]
     Active Substance: LEVOTHYROXINE SODIUM
     Dosage: 100 ?G, DAILY
     Route: 048
  4. MOUTH WASH [Concomitant]
     Dosage: (TAKE AS DIRECTED)
  5. PLAVIX [Concomitant]
     Active Substance: CLOPIDOGREL BISULFATE
     Dosage: 75 MG, DAILY (TAKE 75 MG TABLET(S) ORAL Q 1 DAY)
     Route: 048
  6. VICODIN [Concomitant]
     Active Substance: ACETAMINOPHEN\HYDROCODONE BITARTRATE
     Dosage: AS NEEDED (1 (5-500 MG) TABLET ORAL Q 4 TO 6 HOURS PRN)
     Route: 048
  7. DIPHENOXYLATE W/ATROPINE SULFATE [Concomitant]
     Active Substance: ATROPINE SULFATE\DIPHENOXYLATE
     Dosage: AS NEEDED, (TAKE 1-2 TABLET (S) ORAL FOUR TIMES A DAY PRN)
     Route: 048
  8. LEVOTHYROXINE SODIUM. [Concomitant]
     Active Substance: LEVOTHYROXINE SODIUM
     Dosage: 25 ?G, DAILY (4 (25 MCG) TABLET ORAL DAILY)
     Route: 048
  9. LISINOPRIL AND HYDROCHLOROTHIAZIDE [Concomitant]
     Active Substance: HYDROCHLOROTHIAZIDE\LISINOPRIL
     Dosage: 1 DF, (1 UNITS (OF 20-12.5 MG) TABLET ORAL AO AM)
     Route: 048
  10. MAGIC MOUTHWASH [Concomitant]
     Active Substance: DIPHENHYDRAMINE HYDROCHLORIDE\LIDOCAINE HYDROCHLORIDE\NYSTATIN
     Dosage: UNK
     Route: 048
  11. PREDNISONE. [Concomitant]
     Active Substance: PREDNISONE
     Dosage: 20 MG, DAILY
     Route: 048
  12. ZITHROMAX [Concomitant]
     Active Substance: AZITHROMYCIN DIHYDRATE
     Dosage: 250 MG, (TAKE AS DIRECTED)
     Route: 048
  13. INLYTA [Suspect]
     Active Substance: AXITINIB
     Dosage: 7.5 MG, UNK
     Route: 048
  14. INLYTA [Suspect]
     Active Substance: AXITINIB
     Dosage: 5 MG, 1X/DAY
     Route: 048
  15. DARBEPOETIN ALFA [Concomitant]
     Active Substance: DARBEPOETIN ALFA
     Dosage: 200 ?G, (Q 1 WEEK FOR 2 WEEKS)
  16. PROCHLORPERAZINE MALEATE. [Concomitant]
     Active Substance: PROCHLORPERAZINE MALEATE
     Dosage: 10 MG, AS NEEDED (TAKE 1 TABLET(S) ORAL Q 4 TO 6 HOURS PRN)
     Route: 048
  17. INLYTA [Suspect]
     Active Substance: AXITINIB
     Indication: SYNOVIAL SARCOMA METASTATIC
     Dosage: 5 MG, UNK
     Route: 048
     Dates: start: 201402
  18. BABY ASPIRIN [Concomitant]
     Active Substance: ASPIRIN
     Dosage: 81 MG, DAILY
     Route: 048
  19. BENTYL [Concomitant]
     Active Substance: DICYCLOMINE HYDROCHLORIDE
     Dosage: 20 MG, (20 MG (OF 20 MG)TABLET ORAL Q 8 HOURS PRN)
     Route: 048
  20. HYDROCHLOROTHIAZIDE. [Concomitant]
     Active Substance: HYDROCHLOROTHIAZIDE
     Dosage: 25 MG, AS NEEDED (TAKE 1 TABLET (S) ORAL DAILY FOR 30 DAYS PRN)
     Route: 048
  21. LEVOFLOXACIN. [Concomitant]
     Active Substance: LEVOFLOXACIN
     Dosage: 600 MG, DAILY (TAKE 1 TABLET(S) ORAL DAILY FOR 7 DAYS)
     Route: 048
  22. BACTRIM DS [Concomitant]
     Active Substance: SULFAMETHOXAZOLE\TRIMETHOPRIM
     Dosage: 1 DF, 2X/DAY
     Route: 048
  23. MEDROL [Concomitant]
     Active Substance: METHYLPREDNISOLONE
     Dosage: 4 MG, (TAKE AS DIRECTED)
     Route: 048
  24. TRAMADOL HYDROCHLORIDE. [Concomitant]
     Active Substance: TRAMADOL HYDROCHLORIDE
     Dosage: 50 MG, AS NEEDED (1 (50 MG) TABLET ORAL Q 4 TO 6 HOURS PRN)
     Route: 048
  25. LORAZEPAM. [Concomitant]
     Active Substance: LORAZEPAM
     Dosage: 1 MG, AS NEEDED (1 MG) TABLET ORAL BID. PRN)
     Route: 048
  26. PERCOCET [Concomitant]
     Active Substance: ACETAMINOPHEN\OXYCODONE HYDROCHLORIDE
     Dosage: 5 MG, 4X/DAY (TAKE 5 MG TABLET(S) ORAL Q 6 HOURS FOR 30 DAYS)
  27. SODIUM CHLORIDE. [Concomitant]
     Active Substance: SODIUM CHLORIDE
     Dosage: 1000 ML, (1,000 ML (OF 0.9%) INTRAVENOUS ONCE OVER 2 HOURS)
     Route: 042

REACTIONS (3)
  - Pneumothorax [Unknown]
  - Diarrhoea [Recovering/Resolving]
  - Product use issue [Unknown]
